FAERS Safety Report 9542336 (Version 2)
Quarter: 2013Q3

REPORT INFORMATION
  Report Type: Report from Study
  Country: DE (occurrence: DE)
  Receive Date: 20130923
  Receipt Date: 20130923
  Transmission Date: 20140515
  Serious: Yes (Hospitalization)
  Sender: FDA-Public Use
  Company Number: DE-SANOFI-AVENTIS-2013SA083521

PATIENT
  Age: 47 Year
  Sex: Female
  Weight: 87 kg

DRUGS (2)
  1. CABAZITAXEL [Suspect]
     Indication: BREAST CANCER
     Route: 042
     Dates: start: 20130710, end: 20130710
  2. CABAZITAXEL [Suspect]
     Indication: BREAST CANCER
     Route: 042
     Dates: start: 20130731, end: 20130731

REACTIONS (3)
  - Pneumonia [Recovered/Resolved]
  - Pulmonary embolism [Recovered/Resolved]
  - Pyrexia [Recovering/Resolving]
